FAERS Safety Report 25201083 (Version 1)
Quarter: 2025Q2

REPORT INFORMATION
  Report Type: Spontaneous
  Country: JP (occurrence: JP)
  Receive Date: 20250416
  Receipt Date: 20250416
  Transmission Date: 20250717
  Serious: Yes (Hospitalization, Other)
  Sender: GLAXOSMITHKLINE
  Company Number: JP-GLAXOSMITHKLINE-JP2019JPN184658

PATIENT

DRUGS (32)
  1. MEPOLIZUMAB [Suspect]
     Active Substance: MEPOLIZUMAB
     Indication: Eosinophilic granulomatosis with polyangiitis
     Dosage: 300MG EVERY 4 WEEKS
     Route: 058
     Dates: start: 20180614, end: 20180614
  2. MEPOLIZUMAB [Suspect]
     Active Substance: MEPOLIZUMAB
     Dosage: 300MG EVERY 4 WEEKS
     Route: 058
     Dates: start: 20180712, end: 20180712
  3. MEPOLIZUMAB [Suspect]
     Active Substance: MEPOLIZUMAB
     Dosage: 300MG EVERY 4 WEEKS
     Route: 058
     Dates: start: 20180809, end: 20180809
  4. MEPOLIZUMAB [Suspect]
     Active Substance: MEPOLIZUMAB
     Dosage: 300MG EVERY 4 WEEKS
     Route: 058
     Dates: start: 20180906, end: 20180906
  5. MEPOLIZUMAB [Suspect]
     Active Substance: MEPOLIZUMAB
     Dosage: 300MG EVERY 4 WEEKS
     Route: 058
     Dates: start: 20181004, end: 20181004
  6. PREDONINE [Suspect]
     Active Substance: PREDNISOLONE
     Indication: Eosinophilic granulomatosis with polyangiitis
     Dosage: 10 MG, 1D
     Route: 048
     Dates: end: 20180619
  7. PREDONINE [Suspect]
     Active Substance: PREDNISOLONE
     Dosage: 5 MG, 1D
     Route: 048
     Dates: start: 20180620, end: 20180824
  8. PREDONINE [Suspect]
     Active Substance: PREDNISOLONE
     Dosage: 7 MG, QOD
     Route: 048
     Dates: start: 20180825, end: 20190208
  9. PREDONINE [Suspect]
     Active Substance: PREDNISOLONE
     Dosage: 7 MG, QOD
     Route: 048
     Dates: start: 20190210
  10. PREDONINE [Suspect]
     Active Substance: PREDNISOLONE
     Dosage: 4 MG, QOD
     Route: 048
     Dates: start: 20180825, end: 20181004
  11. PREDONINE [Suspect]
     Active Substance: PREDNISOLONE
     Dosage: 3 MG, QOD
     Route: 048
     Dates: start: 20181005, end: 20181129
  12. PREDONINE [Suspect]
     Active Substance: PREDNISOLONE
     Dosage: 2 MG, QOD
     Route: 048
     Dates: start: 20181130, end: 20181213
  13. PREDONINE [Suspect]
     Active Substance: PREDNISOLONE
     Dosage: 1 MG, QOD
     Route: 048
     Dates: start: 20181214, end: 20190208
  14. PREDONINE [Suspect]
     Active Substance: PREDNISOLONE
     Dosage: 1 MG, QOD
     Route: 048
     Dates: start: 20190210, end: 20190424
  15. PREDNISOLONE [Suspect]
     Active Substance: PREDNISOLONE
     Indication: Eosinophilic granulomatosis with polyangiitis
     Dosage: 4 MG, 1D
     Route: 048
     Dates: start: 20180620, end: 20180622
  16. PREDNISOLONE [Suspect]
     Active Substance: PREDNISOLONE
     Dosage: 3 MG, 1D
     Route: 048
     Dates: start: 20180623, end: 20180628
  17. PREDNISOLONE [Suspect]
     Active Substance: PREDNISOLONE
     Dosage: 2 MG, 1D
     Route: 048
     Dates: start: 20180629, end: 20180719
  18. PREDNISOLONE [Suspect]
     Active Substance: PREDNISOLONE
     Dosage: 1 MG, 1D
     Route: 048
     Dates: start: 20180720, end: 20180809
  19. PREDNISOLONE [Suspect]
     Active Substance: PREDNISOLONE
     Dosage: 4 MG, 1D
     Route: 048
     Dates: start: 20180825
  20. MIZORIBINE [Suspect]
     Active Substance: MIZORIBINE
     Indication: Eosinophilic granulomatosis with polyangiitis
     Dosage: 300 MG, 1D
     Route: 048
     Dates: end: 20181107
  21. MIZORIBINE [Suspect]
     Active Substance: MIZORIBINE
     Dosage: 300 MG, 1D
     Route: 048
     Dates: start: 20181113
  22. SYMBICORT [Concomitant]
     Active Substance: BUDESONIDE\FORMOTEROL FUMARATE DIHYDRATE
     Indication: Eosinophilic granulomatosis with polyangiitis
     Dosage: 640 ?G, 1D
  23. AMLODIPINE BESYLATE [Concomitant]
     Active Substance: AMLODIPINE BESYLATE
  24. MIYA-BM [Concomitant]
     Active Substance: CLOSTRIDIUM BUTYRICUM SPORES STRAIN M-55
  25. POTASSIUM CHLORIDE [Concomitant]
     Active Substance: POTASSIUM CHLORIDE
  26. LYRICA [Concomitant]
     Active Substance: PREGABALIN
     Indication: Eosinophilic granulomatosis with polyangiitis
  27. ALFACALCIDOL [Concomitant]
     Active Substance: ALFACALCIDOL
     Indication: Osteoporosis
  28. SULFAMETHOXAZOLE\TRIMETHOPRIM [Concomitant]
     Active Substance: SULFAMETHOXAZOLE\TRIMETHOPRIM
     Indication: Antifungal prophylaxis
  29. DENOSUMAB [Concomitant]
     Active Substance: DENOSUMAB
  30. SULFAMETHOXAZOLE\TRIMETHOPRIM [Concomitant]
     Active Substance: SULFAMETHOXAZOLE\TRIMETHOPRIM
     Indication: Antifungal prophylaxis
  31. METHYLCOBALAMIN [Concomitant]
     Active Substance: METHYLCOBALAMIN
     Indication: Eosinophilic granulomatosis with polyangiitis
  32. FASENRA [Concomitant]
     Active Substance: BENRALIZUMAB

REACTIONS (1)
  - Pneumonia [Recovered/Resolved]

NARRATIVE: CASE EVENT DATE: 20181107
